FAERS Safety Report 5715112-X (Version None)
Quarter: 2008Q2

REPORT INFORMATION
  Report Type: 
  Country: None (occurrence: None)
  Receive Date: 20080423
  Receipt Date: 20080422
  Transmission Date: 20081010
  Serious: Yes (Death)
  Sender: FDA-Public Use
  Company Number: SE-BOEHRINGER INGELHEIM GMBH, GERMANY-2008-DE-02340GD

PATIENT

DRUGS (4)
  1. ALTEPLASE [Suspect]
  2. DIPYRIDAMOLE [Suspect]
  3. ACETYLSALICYLIC ACID SRT [Suspect]
  4. HEPARIN [Suspect]

REACTIONS (1)
  - CEREBRAL HAEMORRHAGE [None]
